FAERS Safety Report 6950263-3 (Version None)
Quarter: 2010Q3

REPORT INFORMATION
  Report Type: 
  Country: None (occurrence: None)
  Receive Date: 20100828
  Receipt Date: 20100201
  Transmission Date: 20110219
  Serious: No
  Sender: FDA-Public Use
  Company Number: US-ABBOTT-10P-163-0623902-00

PATIENT
  Sex: Female
  Weight: 83.99 kg

DRUGS (3)
  1. NIASPAN [Suspect]
     Indication: BLOOD TRIGLYCERIDES INCREASED
     Route: 048
     Dates: start: 20100127
  2. LOVASA [Concomitant]
     Indication: BLOOD CHOLESTEROL
     Route: 048
  3. LOVASA [Concomitant]
     Indication: BLOOD TRIGLYCERIDES

REACTIONS (3)
  - BURNING SENSATION [None]
  - EYE SWELLING [None]
  - LIP SWELLING [None]
